FAERS Safety Report 8589952-6 (Version None)
Quarter: 2012Q3

REPORT INFORMATION
  Report Type: 
  Country: None (occurrence: None)
  Receive Date: 20120813
  Receipt Date: 19880708
  Transmission Date: 20120928
  Serious: Yes (Hospitalization)
  Sender: FDA-Public Use
  Company Number: US-ROCHE-1099289

PATIENT
  Age: 40 Year
  Sex: Male

DRUGS (3)
  1. ACTIVASE [Suspect]
     Indication: ACUTE MYOCARDIAL INFARCTION
     Route: 065
  2. CARDIZEM [Concomitant]
  3. ASPIRIN [Concomitant]
     Dosage: 1 DAILY

REACTIONS (1)
  - CARDIAC VENTRICULAR DISORDER [None]
